FAERS Safety Report 15925583 (Version 1)
Quarter: 2019Q1

REPORT INFORMATION
  Report Type: Report from Study
  Country: US (occurrence: US)
  Receive Date: 20190206
  Receipt Date: 20190206
  Transmission Date: 20190417
  Serious: Yes (Hospitalization, Other)
  Sender: FDA-Public Use
  Company Number: US-SA-2017SA116705

PATIENT
  Age: 35 Year
  Sex: Male

DRUGS (5)
  1. ALEMTUZUMAB [Suspect]
     Active Substance: ALEMTUZUMAB
     Indication: MULTIPLE SCLEROSIS
     Dosage: 12 MG, QD
     Route: 041
     Dates: start: 20170619, end: 20170621
  2. ALEMTUZUMAB [Suspect]
     Active Substance: ALEMTUZUMAB
     Dosage: 12 MG, QD
     Route: 041
     Dates: start: 20160613, end: 20160617
  3. FLOMAX [Concomitant]
     Active Substance: TAMSULOSIN HYDROCHLORIDE
     Indication: MICTURITION DISORDER
     Dosage: UNK UNK,UNK
     Route: 065
  4. LEXAPRO [Concomitant]
     Active Substance: ESCITALOPRAM OXALATE
     Indication: DEPRESSION
     Dosage: UNK UNK,UNK
     Route: 065
  5. ALLEGRA [Concomitant]
     Active Substance: FEXOFENADINE HYDROCHLORIDE
     Indication: SEASONAL ALLERGY
     Dosage: 1 DF,QD
     Route: 065

REACTIONS (11)
  - Haemorrhage [Unknown]
  - Thrombocytopenia [Not Recovered/Not Resolved]
  - Wheezing [Recovered/Resolved]
  - Blood glucose increased [Unknown]
  - Pyrexia [Recovered/Resolved]
  - Urticaria [Recovered/Resolved]
  - Platelet count decreased [Not Recovered/Not Resolved]
  - Drug hypersensitivity [Recovered/Resolved]
  - Syncope [Recovered/Resolved]
  - Gingival bleeding [Unknown]
  - Rash macular [Not Recovered/Not Resolved]

NARRATIVE: CASE EVENT DATE: 201706
